FAERS Safety Report 7397521-9 (Version None)
Quarter: 2011Q2

REPORT INFORMATION
  Report Type: 
  Country: None (occurrence: None)
  Receive Date: 20110406
  Receipt Date: 20110331
  Transmission Date: 20111010
  Serious: Yes (Other)
  Sender: FDA-Public Use
  Company Number: BR-PFIZER INC-2011072660

PATIENT
  Age: 72 Year
  Sex: Female
  Weight: 72.5 kg

DRUGS (2)
  1. CHAMPIX [Suspect]
     Dosage: 1 MG, 2X/DAY (1MG EVERY 12 HOURS)
     Route: 048
  2. CHAMPIX [Suspect]
     Indication: TOBACCO USER
     Dosage: UNK
     Route: 048
     Dates: start: 20110101

REACTIONS (1)
  - LIVER DISORDER [None]
